FAERS Safety Report 4516740-X (Version None)
Quarter: 2004Q4

REPORT INFORMATION
  Report Type: 
  Country: None (occurrence: None)
  Receive Date: 20041029
  Receipt Date: 20040826
  Transmission Date: 20050328
  Serious: No
  Sender: FDA-Public Use
  Company Number: 2004-119882-NL

PATIENT
  Age: 25 Year
  Sex: Female
  Weight: 47.2 kg

DRUGS (5)
  1. NUVARING [Suspect]
     Indication: CONTRACEPTION
     Dosage: DF DAILY VAGINAL
     Route: 067
     Dates: start: 20030201
  2. ALLEGRA [Concomitant]
  3. CLARITIN [Concomitant]
  4. TETRACYCLINE [Concomitant]
  5. K-Y JELLY [Concomitant]

REACTIONS (2)
  - COMPLICATION OF DEVICE REMOVAL [None]
  - MEDICAL DEVICE DISCOMFORT [None]
